FAERS Safety Report 19992674 (Version 1)
Quarter: 2021Q4

REPORT INFORMATION
  Report Type: Report from Study
  Country: US (occurrence: US)
  Receive Date: 20211025
  Receipt Date: 20211025
  Transmission Date: 20220303
  Serious: No
  Sender: FDA-Public Use
  Company Number: US-NOVARTISTESTPH-NVSC2021US242755

PATIENT
  Sex: Male

DRUGS (1)
  1. ENTRESTO [Suspect]
     Active Substance: SACUBITRIL\VALSARTAN
     Indication: Cardiac failure
     Dosage: 97.103 MG
     Route: 048
     Dates: start: 202109

REACTIONS (3)
  - Energy increased [Recovering/Resolving]
  - Malaise [Recovering/Resolving]
  - Dizziness [Recovering/Resolving]
